FAERS Safety Report 17000231 (Version 1)
Quarter: 2019Q4

REPORT INFORMATION
  Report Type: Spontaneous
  Country: US (occurrence: US)
  Receive Date: 20190924
  Receipt Date: 20190924
  Transmission Date: 20200122
  Serious: Yes (Hospitalization)
  Sender: FDA-Public Use
  Company Number: None

PATIENT
  Age: 58 Year
  Sex: Female
  Weight: 91.3 kg

DRUGS (1)
  1. ASPIRIN. [Suspect]
     Active Substance: ASPIRIN
     Dates: end: 20190624

REACTIONS (7)
  - Hypokalaemia [None]
  - Hypocalcaemia [None]
  - Anaemia [None]
  - Impaired healing [None]
  - Platelet count decreased [None]
  - Skin flap necrosis [None]
  - Therapy cessation [None]

NARRATIVE: CASE EVENT DATE: 20190704
